FAERS Safety Report 25016401 (Version 2)
Quarter: 2025Q1

REPORT INFORMATION
  Report Type: Spontaneous
  Country: US (occurrence: US)
  Receive Date: 20250227
  Receipt Date: 20250326
  Transmission Date: 20250408
  Serious: No
  Sender: LEO PHARM
  Company Number: US-LEO Pharma-377944

PATIENT
  Age: 32 Year
  Sex: Female

DRUGS (3)
  1. ADBRY [Suspect]
     Active Substance: TRALOKINUMAB-LDRM
     Indication: Dermatitis atopic
     Dosage: 2 PENS UNDER THE SKIN ON DAY 1; TREATMENT REPORTED AS ONGOING
     Dates: start: 202502
  2. ADBRY [Suspect]
     Active Substance: TRALOKINUMAB-LDRM
     Indication: Pruritus
     Dosage: 2 PENS UNDER THE SKIN ON DAY 1; TREATMENT REPORTED AS ONGOING
     Dates: start: 202502
  3. ADBRY [Suspect]
     Active Substance: TRALOKINUMAB-LDRM
     Indication: Psoriasis
     Dosage: 2 PENS UNDER THE SKIN ON DAY 1; TREATMENT REPORTED AS ONGOING
     Dates: start: 202502

REACTIONS (1)
  - Headache [Unknown]
